FAERS Safety Report 13269167 (Version 1)
Quarter: 2017Q1

REPORT INFORMATION
  Report Type: Spontaneous
  Country: NI (occurrence: NI)
  Receive Date: 20170224
  Receipt Date: 20170224
  Transmission Date: 20170428
  Serious: Yes (Other)
  Sender: FDA-Public Use
  Company Number: NI-ABBVIE-17P-119-1882999-00

PATIENT

DRUGS (1)
  1. SEVORANE [Suspect]
     Active Substance: SEVOFLURANE
     Indication: GENERAL ANAESTHESIA
     Route: 055
     Dates: start: 201702, end: 201702

REACTIONS (5)
  - Anaesthetic complication [Unknown]
  - Product quality issue [Unknown]
  - Product odour abnormal [Unknown]
  - Unwanted awareness during anaesthesia [Unknown]
  - Product tampering [Unknown]

NARRATIVE: CASE EVENT DATE: 201702
